FAERS Safety Report 6104754-8 (Version None)
Quarter: 2009Q1

REPORT INFORMATION
  Report Type: 
  Country: None (occurrence: None)
  Receive Date: 20090304
  Receipt Date: 20090304
  Transmission Date: 20090719
  Serious: No
  Sender: FDA-Public Use
  Company Number: None

PATIENT
  Age: 64 Year
  Sex: Male
  Weight: 70.3075 kg

DRUGS (2)
  1. UNISOM [Suspect]
     Indication: INSOMNIA
     Dosage: ONE TABLET ONE AT BEDTIME PO
     Route: 048
     Dates: start: 20090303, end: 20090303
  2. UNISOM [Suspect]
     Indication: SLEEP DISORDER
     Dosage: ONE TABLET ONE AT BEDTIME PO
     Route: 048
     Dates: start: 20090303, end: 20090303

REACTIONS (3)
  - DIZZINESS [None]
  - MEDICATION ERROR [None]
  - SOMNOLENCE [None]
